FAERS Safety Report 6896004-X (Version None)
Quarter: 2010Q3

REPORT INFORMATION
  Report Type: 
  Country: None (occurrence: None)
  Receive Date: 20100802
  Receipt Date: 20100721
  Transmission Date: 20110219
  Serious: Yes (Hospitalization)
  Sender: FDA-Public Use
  Company Number: A0733530A

PATIENT
  Age: 59 Year
  Sex: Male
  Weight: 126.4 kg

DRUGS (12)
  1. AVANDIA [Suspect]
     Route: 048
     Dates: start: 20050801, end: 20070712
  2. GLIPIZIDE [Concomitant]
  3. CITALOPRAM HYDROBROMIDE [Concomitant]
  4. CLOPIDOGREL BISULFATE [Suspect]
  5. HYDROCHLOROTHIAZIDE [Concomitant]
  6. LOSARTAN POSTASSIUM [Concomitant]
  7. METOPROLOL [Concomitant]
  8. NITROGLYCERIN [Concomitant]
  9. OMEPRAZOLE [Concomitant]
  10. SIMVASTATIN [Concomitant]
  11. TRAZODONE [Concomitant]
  12. FUROSEMIDE [Concomitant]

REACTIONS (6)
  - ACUTE MYOCARDIAL INFARCTION [None]
  - ANGINA UNSTABLE [None]
  - ARTHRITIS [None]
  - CARDIAC FAILURE CONGESTIVE [None]
  - CARDIAC VALVE DISEASE [None]
  - HAEMOPTYSIS [None]
